FAERS Safety Report 12166797 (Version 3)
Quarter: 2016Q2

REPORT INFORMATION
  Report Type: Spontaneous
  Country: US (occurrence: US)
  Receive Date: 20160310
  Receipt Date: 20160519
  Transmission Date: 20160815
  Serious: Yes (Hospitalization)
  Sender: FDA-Public Use
  Company Number: US-BEH-2016059564

PATIENT
  Age: 70 Year
  Sex: Female
  Weight: 90 kg

DRUGS (37)
  1. HIZENTRA [Suspect]
     Active Substance: HUMAN IMMUNOGLOBULIN G
  2. ALBUTEROL. [Concomitant]
     Active Substance: ALBUTEROL
  3. DALIRESP [Concomitant]
     Active Substance: ROFLUMILAST
  4. ALPRAZOLAM. [Concomitant]
     Active Substance: ALPRAZOLAM
  5. BACTRIM DS [Concomitant]
     Active Substance: SULFAMETHOXAZOLE\TRIMETHOPRIM
  6. CALCIUM+D PLUS MINERAL [Concomitant]
  7. LIDOCAINE. [Concomitant]
     Active Substance: LIDOCAINE
  8. EPIPEN [Concomitant]
     Active Substance: EPINEPHRINE
  9. SULFAMETHOXAZOLE [Concomitant]
     Active Substance: SULFAMETHOXAZOLE
  10. PERFOROMIST [Concomitant]
     Active Substance: FORMOTEROL FUMARATE DIHYDRATE
  11. COREG [Concomitant]
     Active Substance: CARVEDILOL
  12. FLONASE [Concomitant]
     Active Substance: FLUTICASONE PROPIONATE
  13. ZYRTEC [Concomitant]
     Active Substance: CETIRIZINE HYDROCHLORIDE
  14. VITAMIN D [Concomitant]
     Active Substance: CHOLECALCIFEROL
  15. DILTIAZEM [Concomitant]
     Active Substance: DILTIAZEM
  16. BACTRIM [Concomitant]
     Active Substance: SULFAMETHOXAZOLE\TRIMETHOPRIM
  17. ACETAMINOPHEN. [Concomitant]
     Active Substance: ACETAMINOPHEN
  18. KLOR-CON [Concomitant]
     Active Substance: POTASSIUM CHLORIDE
  19. TORSEMIDE. [Concomitant]
     Active Substance: TORSEMIDE
  20. VITAMIN B [Concomitant]
     Active Substance: VITAMIN B
  21. LIPITOR [Concomitant]
     Active Substance: ATORVASTATIN CALCIUM
  22. HIZENTRA [Suspect]
     Active Substance: HUMAN IMMUNOGLOBULIN G
     Indication: IMMUNODEFICIENCY COMMON VARIABLE
     Dosage: 10 GM 50 ML VIAL
     Route: 058
     Dates: start: 20140625
  23. TOVIAZ [Concomitant]
     Active Substance: FESOTERODINE FUMARATE
  24. BIOTIN [Concomitant]
     Active Substance: BIOTIN
  25. MIRTAZAPINE. [Concomitant]
     Active Substance: MIRTAZAPINE
  26. COMBIVENT [Concomitant]
     Active Substance: ALBUTEROL SULFATE\IPRATROPIUM BROMIDE
  27. SPIRIVA [Concomitant]
     Active Substance: TIOTROPIUM BROMIDE MONOHYDRATE
  28. VITAMIN B12 [Concomitant]
     Active Substance: CYANOCOBALAMIN
  29. HIZENTRA [Suspect]
     Active Substance: HUMAN IMMUNOGLOBULIN G
  30. BUDESONIDE. [Concomitant]
     Active Substance: BUDESONIDE
  31. PREDNISONE. [Concomitant]
     Active Substance: PREDNISONE
  32. METHIMAZOLE. [Concomitant]
     Active Substance: METHIMAZOLE
  33. METOPROLOL. [Concomitant]
     Active Substance: METOPROLOL
  34. DIPHENHYDRAMINE. [Concomitant]
     Active Substance: DIPHENHYDRAMINE
  35. LEXAPRO [Concomitant]
     Active Substance: ESCITALOPRAM OXALATE
  36. PROBIOTIC [Concomitant]
     Active Substance: PROBIOTICS NOS
  37. HIZENTRA [Suspect]
     Active Substance: HUMAN IMMUNOGLOBULIN G

REACTIONS (11)
  - Diabetic complication [Unknown]
  - Cardiac failure congestive [Unknown]
  - Acute respiratory failure [Unknown]
  - Chronic respiratory failure [Unknown]
  - Atrial fibrillation [Unknown]
  - Pneumonia [Unknown]
  - Chronic obstructive pulmonary disease [Unknown]
  - Pneumonia [Unknown]
  - Cardiac failure congestive [Unknown]
  - Chronic obstructive pulmonary disease [Unknown]
  - Atrial fibrillation [Unknown]

NARRATIVE: CASE EVENT DATE: 20160221
